FAERS Safety Report 20214243 (Version 2)
Quarter: 2022Q1

REPORT INFORMATION
  Report Type: Spontaneous
  Country: BR (occurrence: BR)
  Receive Date: 20211221
  Receipt Date: 20220127
  Transmission Date: 20220423
  Serious: Yes (Other)
  Sender: FDA-Public Use
  Company Number: BR-SA-SAC20211107000155

PATIENT
  Age: 93 Year
  Sex: Male
  Weight: 64 kg

DRUGS (6)
  1. CLOPIDOGREL BISULFATE [Suspect]
     Active Substance: CLOPIDOGREL BISULFATE
     Indication: Coronary artery disease
     Dosage: 1 DF, QD
     Route: 065
     Dates: start: 201702
  2. ASPIRIN [Suspect]
     Active Substance: ASPIRIN
     Indication: Anticoagulant therapy
     Dosage: UNK
     Dates: start: 201702, end: 201711
  3. NITRENDIPINE [Concomitant]
     Active Substance: NITRENDIPINE
     Dosage: 5 MG, QD
  4. CHOLECALCIFEROL [Concomitant]
     Active Substance: CHOLECALCIFEROL
     Dosage: 2 DF, QW
  5. CARVEDILOL [Concomitant]
     Active Substance: CARVEDILOL
     Dosage: 2 DF, QD
  6. CYANOCOBALAMIN [Concomitant]
     Active Substance: CYANOCOBALAMIN
     Dosage: 1 DF, QOW

REACTIONS (10)
  - Deafness neurosensory [Unknown]
  - Gastric ulcer [Unknown]
  - Dysgeusia [Unknown]
  - Malaise [Recovered/Resolved]
  - Abdominal discomfort [Recovered/Resolved]
  - Hypoacusis [Unknown]
  - Blood pressure increased [Recovered/Resolved]
  - Dizziness [Recovered/Resolved]
  - Product taste abnormal [Unknown]
  - Product packaging issue [Unknown]

NARRATIVE: CASE EVENT DATE: 20070101
